FAERS Safety Report 22084396 (Version 3)
Quarter: 2023Q2

REPORT INFORMATION
  Report Type: Spontaneous
  Country: US (occurrence: US)
  Receive Date: 20230310
  Receipt Date: 20230605
  Transmission Date: 20230721
  Serious: Yes (Hospitalization, Other)
  Sender: FDA-Public Use
  Company Number: US-BRISTOL-MYERS SQUIBB COMPANY-2023-035127

PATIENT
  Age: 68 Year
  Sex: Male

DRUGS (2)
  1. REVLIMID [Suspect]
     Active Substance: LENALIDOMIDE
     Indication: Product used for unknown indication
     Dosage: OTHER
     Route: 048
     Dates: end: 20230509
  2. REVLIMID [Suspect]
     Active Substance: LENALIDOMIDE
     Dates: start: 202305

REACTIONS (2)
  - Traumatic intracranial haemorrhage [Unknown]
  - Syncope [Unknown]

NARRATIVE: CASE EVENT DATE: 20230225
